FAERS Safety Report 10061213 (Version 2)
Quarter: 2014Q2

REPORT INFORMATION
  Report Type: Spontaneous
  Country: GB (occurrence: GB)
  Receive Date: 20140407
  Receipt Date: 20140501
  Transmission Date: 20141212
  Serious: Yes (Disabling, Other)
  Sender: FDA-Public Use
  Company Number: PHHY2014GB036812

PATIENT
  Age: 22 Year
  Sex: Female
  Weight: 54.5 kg

DRUGS (3)
  1. DOXYCYCLINE [Suspect]
     Indication: LOWER RESPIRATORY TRACT INFECTION
     Dosage: 100 MG, UNK (TWO ON DAY ONE THEN ONE DAILY)
     Route: 048
     Dates: start: 20131230, end: 20140106
  2. DOXYCYCLINE [Suspect]
     Dosage: 200 MG, QD
     Route: 048
     Dates: start: 20140106, end: 20140113
  3. CLARITHROMYCIN [Concomitant]
     Dates: start: 20131216

REACTIONS (10)
  - Somnolence [Not Recovered/Not Resolved]
  - Paraesthesia [Recovering/Resolving]
  - Fatigue [Not Recovered/Not Resolved]
  - Asthenia [Not Recovered/Not Resolved]
  - Incorrect dose administered [Unknown]
  - Jaundice [Recovered/Resolved]
  - Rash pruritic [Recovered/Resolved]
  - Blister [Recovered/Resolved]
  - Rash erythematous [Recovered/Resolved]
  - Liver function test abnormal [Recovered/Resolved]
